FAERS Safety Report 5191028-5 (Version None)
Quarter: 2006Q4

REPORT INFORMATION
  Report Type: 
  Country: None (occurrence: None)
  Receive Date: 20061218
  Receipt Date: 20061205
  Transmission Date: 20070319
  Serious: Yes (Hospitalization)
  Sender: FDA-Public Use
  Company Number: 2006SP007754

PATIENT
  Age: 38 Year
  Sex: Male

DRUGS (5)
  1. VIRAFERONPEG [Suspect]
     Indication: HEPATITIS C
     Dosage: 150 MCG;QW;SC
     Route: 058
     Dates: start: 20060926, end: 20061108
  2. REBETOL [Suspect]
     Indication: HEPATITIS C
     Dosage: 1000 MG; QD; PO
     Route: 048
     Dates: start: 20060919, end: 20061108
  3. ARANESP [Suspect]
     Indication: ANAEMIA
     Dosage: 130 MCG; ONCE; SC
     Route: 058
     Dates: start: 20061019
  4. SUSTIVA [Concomitant]
  5. COMBIVIR [Concomitant]

REACTIONS (9)
  - ANAEMIA [None]
  - ASTHENIA [None]
  - AXILLARY VEIN THROMBOSIS [None]
  - PELVIC VENOUS THROMBOSIS [None]
  - PLATELET COUNT INCREASED [None]
  - PROTEIN TOTAL DECREASED [None]
  - PULMONARY EMBOLISM [None]
  - PYREXIA [None]
  - THROMBOPHLEBITIS [None]
